FAERS Safety Report 20059149 (Version 2)
Quarter: 2021Q4

REPORT INFORMATION
  Report Type: Other
  Country: US (occurrence: None)
  Receive Date: 20211111
  Receipt Date: 20211207
  Transmission Date: 20220304
  Serious: Yes (Hospitalization)
  Sender: FDA-Public Use
  Company Number: US-ROCHE-2946919

PATIENT
  Age: 63 Year
  Sex: Female
  Weight: 48.578 kg

DRUGS (16)
  1. OCREVUS [Suspect]
     Active Substance: OCRELIZUMAB
     Indication: Progressive multiple sclerosis
     Dosage: UNKNOWN
     Route: 042
     Dates: start: 20190215
  2. BIOTIN [Concomitant]
     Active Substance: BIOTIN
     Dosage: UNKNOWN
     Route: 048
  3. FLONASE [Concomitant]
     Active Substance: FLUTICASONE PROPIONATE
     Dosage: UNKNOWN
     Route: 045
  4. ATARAX [Concomitant]
     Active Substance: HYDROXYZINE HYDROCHLORIDE
     Dosage: UNKNOWN
     Route: 048
  5. ACIDOPHILUS [Concomitant]
     Active Substance: LACTOBACILLUS ACIDOPHILUS
     Dosage: UNKNOWN
     Route: 048
  6. ACETAMINOPHEN [Concomitant]
     Active Substance: ACETAMINOPHEN
  7. BUTRANS [Concomitant]
     Active Substance: BUPRENORPHINE
  8. LYRICA [Concomitant]
     Active Substance: PREGABALIN
  9. BIOFREEZE (UNITED STATES) [Concomitant]
  10. MELATONIN [Concomitant]
     Active Substance: MELATONIN
  11. ASCORBIC ACID [Concomitant]
     Active Substance: ASCORBIC ACID
  12. BACLOFEN [Concomitant]
     Active Substance: BACLOFEN
  13. BISACODYL [Concomitant]
     Active Substance: BISACODYL
  14. VITAMIN D3 [Concomitant]
     Active Substance: CHOLECALCIFEROL
  15. CITALOPRAM [Concomitant]
     Active Substance: CITALOPRAM HYDROBROMIDE
  16. GABAPENTIN [Concomitant]
     Active Substance: GABAPENTIN

REACTIONS (10)
  - Septic shock [Unknown]
  - Pneumonia aspiration [Unknown]
  - Respiratory distress [Unknown]
  - Cough [Unknown]
  - Oxygen saturation decreased [Unknown]
  - Lethargy [Unknown]
  - Urinary tract infection [Unknown]
  - Toxic encephalopathy [Unknown]
  - Cough [Unknown]
  - Heart rate increased [Unknown]

NARRATIVE: CASE EVENT DATE: 20210901
